FAERS Safety Report 24734790 (Version 4)
Quarter: 2025Q1

REPORT INFORMATION
  Report Type: Spontaneous
  Country: US (occurrence: US)
  Receive Date: 20241215
  Receipt Date: 20250301
  Transmission Date: 20250409
  Serious: Yes (Other)
  Sender: SANOFI AVENTIS
  Company Number: US-SA-2024SA368152

PATIENT
  Age: 64 Year
  Sex: Male

DRUGS (1)
  1. DUPIXENT [Suspect]
     Active Substance: DUPILUMAB
     Indication: Asthma
     Dosage: 300 MG, QOW
     Route: 058

REACTIONS (9)
  - Choking [Unknown]
  - Bronchitis [Unknown]
  - COVID-19 [Unknown]
  - Secretion discharge [Unknown]
  - Productive cough [Unknown]
  - Sinonasal obstruction [Unknown]
  - Upper respiratory tract infection [Unknown]
  - Cough [Unknown]
  - Therapeutic response decreased [Unknown]
